FAERS Safety Report 18912692 (Version 4)
Quarter: 2021Q2

REPORT INFORMATION
  Report Type: Report from Study
  Country: None (occurrence: CO)
  Receive Date: 20210219
  Receipt Date: 20210402
  Transmission Date: 20210717
  Serious: Yes (Other)
  Sender: FDA-Public Use
  Company Number: CO-ABBVIE-20K-036-3677995-00

PATIENT
  Age: 66 Year
  Sex: Female
  Weight: 76 kg

DRUGS (3)
  1. HUMIRA [Suspect]
     Active Substance: ADALIMUMAB
     Route: 058
  2. HUMIRA [Suspect]
     Active Substance: ADALIMUMAB
     Indication: UVEITIS
     Route: 058
     Dates: start: 20201015
  3. CHLORPHENAMINE [Suspect]
     Active Substance: CHLORPHENIRAMINE MALEATE
     Indication: ADVERSE EVENT
     Dosage: 1 TAB AT NIGHT
     Route: 048
     Dates: start: 2021

REACTIONS (10)
  - Uveitis [Not Recovered/Not Resolved]
  - Drug ineffective [Not Recovered/Not Resolved]
  - Hypersomnia [Recovering/Resolving]
  - Injection site rash [Recovered/Resolved]
  - Blindness [Not Recovered/Not Resolved]
  - Vertigo [Recovering/Resolving]
  - Injection site urticaria [Recovered/Resolved]
  - Injection site hypersensitivity [Recovering/Resolving]
  - Injection site rash [Recovered/Resolved]
  - Headache [Recovering/Resolving]

NARRATIVE: CASE EVENT DATE: 2020
